FAERS Safety Report 5538359-4 (Version None)
Quarter: 2007Q4

REPORT INFORMATION
  Report Type: 
  Country: None (occurrence: None)
  Receive Date: 20071205
  Receipt Date: 20071121
  Transmission Date: 20080405
  Serious: Yes (Hospitalization)
  Sender: FDA-Public Use
  Company Number: 062-20785-07111125

PATIENT
  Age: 69 Year
  Sex: Female

DRUGS (9)
  1. THALIDOMIDE [Suspect]
     Indication: MULTIPLE MYELOMA
     Dosage: 200 MG, 4 IN 1 D, ORAL
     Route: 048
     Dates: start: 20070814
  2. FAKTU (FAKTU) [Concomitant]
  3. LAXATAB (LAXATAB) [Concomitant]
  4. REMEGIL (MIRTAZAPINE) [Concomitant]
  5. COUMADIN [Concomitant]
  6. NYSTADERM (NYSTATIN) [Concomitant]
  7. ENOXAPARIN SODIUM [Concomitant]
  8. LEVOTHYROXINE SODIUM [Concomitant]
  9. ATENOLOL [Concomitant]

REACTIONS (1)
  - DIVERTICULITIS [None]
